FAERS Safety Report 16995276 (Version 2)
Quarter: 2019Q4

REPORT INFORMATION
  Report Type: Report from Study
  Country: US (occurrence: US)
  Receive Date: 20191105
  Receipt Date: 20191212
  Transmission Date: 20200122
  Serious: No
  Sender: FDA-Public Use
  Company Number: NVSC2019US018421

PATIENT
  Age: 50 Year
  Sex: Female
  Weight: 73 kg

DRUGS (8)
  1. AZITHROMYCIN ANHYDROUS. [Concomitant]
     Active Substance: AZITHROMYCIN ANHYDROUS
     Indication: MYCOBACTERIUM ABSCESSUS INFECTION
     Dosage: 250 MG
     Route: 065
     Dates: start: 201909
  2. IMIPENEM [Concomitant]
     Active Substance: IMIPENEM
     Indication: LUNG DISORDER
  3. LAMPRENE [Suspect]
     Active Substance: CLOFAZIMINE
     Indication: MYCOBACTERIUM ABSCESSUS INFECTION
     Dosage: 100 MG, QD
     Route: 048
     Dates: start: 20191007
  4. LAMPRENE [Suspect]
     Active Substance: CLOFAZIMINE
     Indication: LUNG DISORDER
  5. AMIKACIN. [Concomitant]
     Active Substance: AMIKACIN
     Indication: MYCOBACTERIUM ABSCESSUS INFECTION
     Dosage: 15 MG
     Route: 065
     Dates: start: 201909
  6. IMIPENEM [Concomitant]
     Active Substance: IMIPENEM
     Indication: MYCOBACTERIUM ABSCESSUS INFECTION
     Dosage: 1000 MG
     Route: 065
     Dates: start: 201909
  7. AMIKACIN. [Concomitant]
     Active Substance: AMIKACIN
     Indication: LUNG DISORDER
  8. AZITHROMYCIN ANHYDROUS. [Concomitant]
     Active Substance: AZITHROMYCIN ANHYDROUS
     Indication: LUNG DISORDER

REACTIONS (5)
  - Pruritus [Recovering/Resolving]
  - Oral papule [Recovering/Resolving]
  - Musculoskeletal stiffness [Recovering/Resolving]
  - Glossodynia [Recovering/Resolving]
  - Balance disorder [Recovering/Resolving]

NARRATIVE: CASE EVENT DATE: 20191010
